FAERS Safety Report 9420166 (Version 1)
Quarter: 2013Q3

REPORT INFORMATION
  Report Type: Spontaneous
  Country: DE (occurrence: DE)
  Receive Date: 20130725
  Receipt Date: 20130725
  Transmission Date: 20140515
  Serious: Yes (Other)
  Sender: FDA-Public Use
  Company Number: DE-NAPPMUNDI-DEU-2013-0011787

PATIENT
  Age: 90 Year
  Sex: Female

DRUGS (10)
  1. NORSPAN [Suspect]
     Indication: NEURALGIA
     Dosage: 20 MCG, Q1H
     Route: 062
     Dates: start: 201104
  2. NORSPAN [Suspect]
     Indication: PAIN
     Dosage: 10 MCG, Q1H
     Route: 062
     Dates: start: 201108
  3. NORSPAN [Suspect]
     Dosage: 5 MCG, Q1H
     Route: 062
     Dates: end: 201108
  4. NORSPAN [Suspect]
     Dosage: UNK
     Dates: start: 201104
  5. CARBIMAZOL [Concomitant]
  6. PANTOPRAZOL [Concomitant]
  7. TORASEMID [Concomitant]
  8. ISMN [Concomitant]
  9. SIMVASTATIN [Concomitant]
  10. OLMETEC [Concomitant]

REACTIONS (3)
  - Renal cancer [Unknown]
  - Gamma-glutamyltransferase increased [Unknown]
  - Alanine aminotransferase increased [Unknown]
